FAERS Safety Report 11190108 (Version 2)
Quarter: 2015Q3

REPORT INFORMATION
  Report Type: Report from Study
  Country: GB (occurrence: GB)
  Receive Date: 20150615
  Receipt Date: 20150727
  Transmission Date: 20151125
  Serious: Yes (Hospitalization)
  Sender: FDA-Public Use
  Company Number: GB-MERCK-1506GBR005363

PATIENT
  Age: 75 Year
  Sex: Female
  Weight: 53.2 kg

DRUGS (2)
  1. VORINOSTAT [Suspect]
     Active Substance: VORINOSTAT
     Indication: ACUTE MYELOID LEUKAEMIA
     Dosage: LAST DOSE GIVEN: 200 MG, BID; CURRENT CYCLE 4
     Route: 048
     Dates: start: 20150218, end: 20150519
  2. AZACITIDINE. [Suspect]
     Active Substance: AZACITIDINE
     Indication: ACUTE MYELOID LEUKAEMIA
     Dosage: DOSE LAST GIVEN: 115 MG, QD;CURRENT CYCLE 4
     Route: 058
     Dates: start: 20150216, end: 20150519

REACTIONS (3)
  - Dizziness [Not Recovered/Not Resolved]
  - Vomiting [Recovered/Resolved]
  - Nystagmus [Recovered/Resolved with Sequelae]

NARRATIVE: CASE EVENT DATE: 20150604
